FAERS Safety Report 4500697-1 (Version None)
Quarter: 2004Q4

REPORT INFORMATION
  Report Type: 
  Country: None (occurrence: None)
  Receive Date: 20041112
  Receipt Date: 20041112
  Transmission Date: 20050328
  Serious: Yes (Death)
  Sender: FDA-Public Use
  Company Number: None

PATIENT
  Age: 93 Year
  Sex: Female
  Weight: 53.5244 kg

DRUGS (1)
  1. ISOVUE [Suspect]
     Dosage: IV
     Route: 042
     Dates: start: 20040722

REACTIONS (3)
  - CARDIO-RESPIRATORY ARREST [None]
  - COMA [None]
  - MYOCARDIAL INFARCTION [None]
